FAERS Safety Report 4559662-0 (Version None)
Quarter: 2005Q1

REPORT INFORMATION
  Report Type: 
  Country: None (occurrence: None)
  Receive Date: 20050124
  Receipt Date: 20041014
  Transmission Date: 20050727
  Serious: Yes (Hospitalization, Disabling, Other)
  Sender: FDA-Public Use
  Company Number: US-AMGEN-US095730

PATIENT
  Sex: Male

DRUGS (5)
  1. EPOGEN [Suspect]
     Indication: RENAL FAILURE CHRONIC
     Route: 058
     Dates: start: 20030801, end: 20040731
  2. PREDNISONE [Concomitant]
  3. CELLCEPT [Concomitant]
  4. INSULIN [Concomitant]
  5. XALATAN [Concomitant]

REACTIONS (12)
  - APLASIA PURE RED CELL [None]
  - COOMBS TEST POSITIVE [None]
  - DEAFNESS NEUROSENSORY [None]
  - DEEP VEIN THROMBOSIS [None]
  - EPSTEIN-BARR VIRUS ANTIBODY POSITIVE [None]
  - HAEMOLYTIC ANAEMIA [None]
  - LUNG INFECTION PSEUDOMONAL [None]
  - NEPHROGENIC DIABETES INSIPIDUS [None]
  - PANCREAS TRANSPLANT REJECTION [None]
  - PNEUMONIA CYTOMEGALOVIRAL [None]
  - SPLENOMEGALY [None]
  - STAPHYLOCOCCAL BACTERAEMIA [None]
